FAERS Safety Report 9248840 (Version 3)
Quarter: 2013Q2

REPORT INFORMATION
  Report Type: Report from Study
  Country: AU (occurrence: AU)
  Receive Date: 20130423
  Receipt Date: 20130508
  Transmission Date: 20140414
  Serious: Yes (Other)
  Sender: FDA-Public Use
  Company Number: AU-ROCHE-1215869

PATIENT
  Sex: Female
  Weight: 78 kg

DRUGS (3)
  1. MABTHERA [Suspect]
     Indication: RHEUMATOID ARTHRITIS
     Route: 065
  2. MABTHERA [Suspect]
     Route: 065
     Dates: start: 20130419
  3. METHYLPREDNISOLONE [Concomitant]
     Indication: RHEUMATOID ARTHRITIS
     Route: 065
     Dates: start: 20130419

REACTIONS (4)
  - Hypotension [Unknown]
  - Skin discolouration [Unknown]
  - Malignant melanoma [Unknown]
  - Hyperhidrosis [Unknown]
